FAERS Safety Report 24780087 (Version 1)
Quarter: 2024Q4

REPORT INFORMATION
  Report Type: Spontaneous
  Country: GB (occurrence: GB)
  Receive Date: 20241227
  Receipt Date: 20241227
  Transmission Date: 20250114
  Serious: Yes (Hospitalization, Other)
  Sender: ELI LILLY AND COMPANY
  Company Number: GB-MHRA-TPP46620896C6760457YC1734027905006

PATIENT
  Age: 63 Year
  Sex: Female
  Weight: 80 kg

DRUGS (11)
  1. MOUNJARO [Suspect]
     Active Substance: TIRZEPATIDE
     Indication: Product used for unknown indication
     Dosage: 2.5 MG, UNKNOWN
     Route: 065
     Dates: start: 20241118
  2. METOCLOPRAMIDE [Concomitant]
     Active Substance: METOCLOPRAMIDE
     Indication: Nausea
     Dosage: TAKE ONE 3 TIMES/DAY FOR NAUSEA AND VOMITING(NO...
     Route: 065
     Dates: start: 20241113, end: 20241118
  3. METOCLOPRAMIDE [Concomitant]
     Active Substance: METOCLOPRAMIDE
     Indication: Vomiting
  4. BECLOMETHASONE DIPROPIONATE [Concomitant]
     Active Substance: BECLOMETHASONE DIPROPIONATE
     Indication: Product used for unknown indication
     Dosage: ONE SPRAY TO BE USED IN EACH NOSTRIL TWICE A DAY
     Route: 045
     Dates: start: 20240322
  5. ATORVASTATIN [Concomitant]
     Active Substance: ATORVASTATIN
     Indication: Product used for unknown indication
     Dosage: ONE TO BE TAKEN EACH DAY
     Route: 065
     Dates: start: 20240419
  6. FEXOFENADINE [Concomitant]
     Active Substance: FEXOFENADINE HYDROCHLORIDE
     Indication: Product used for unknown indication
     Dosage: ONE TO BE TAKEN EACH DAY
     Route: 065
     Dates: start: 20240419
  7. HYDROXYCHLOROQUINE SULFATE [Concomitant]
     Active Substance: HYDROXYCHLOROQUINE SULFATE
     Indication: Product used for unknown indication
     Dosage: ONE TABLET TO BE TAKEN ONCE A DAY
     Route: 065
     Dates: start: 20240419
  8. LEVOTHYROXINE [Concomitant]
     Active Substance: LEVOTHYROXINE
     Indication: Product used for unknown indication
     Dosage: ONE TO BE TAKEN EACH MORNING (TOTAL 150MCG)
     Route: 065
     Dates: start: 20240419
  9. HYDROMOL [SODIUM PIDOLATE] [Concomitant]
     Indication: Product used for unknown indication
     Dosage: UNK, PRN
     Route: 065
     Dates: start: 20240712
  10. VAGIFEM [Concomitant]
     Active Substance: ESTRADIOL
     Indication: Product used for unknown indication
     Dosage: USE THREE TIMES A WEEK
     Route: 065
     Dates: start: 20240823
  11. ESTRIOL [Concomitant]
     Active Substance: ESTRIOL
     Indication: Product used for unknown indication
     Dosage: APPLY AT NIGHT TO THE VAGINA TWICE A WEEK FOR O...
     Route: 067
     Dates: start: 20240911

REACTIONS (2)
  - Diarrhoea [Recovered/Resolved]
  - Acute kidney injury [Recovered/Resolved]

NARRATIVE: CASE EVENT DATE: 20241120
